FAERS Safety Report 6799940-8 (Version None)
Quarter: 2010Q2

REPORT INFORMATION
  Report Type: 
  Country: None (occurrence: None)
  Receive Date: 20100615
  Receipt Date: 20100607
  Transmission Date: 20101027
  Serious: Yes (Hospitalization)
  Sender: FDA-Public Use
  Company Number: WAES1002USA00417

PATIENT
  Age: 56 Year
  Sex: Male

DRUGS (9)
  1. CLINORIL [Suspect]
     Indication: BACK PAIN
     Dosage: 200 MG/BID
     Route: 048
     Dates: start: 20100607
  2. TARCEVA [Suspect]
     Indication: NON-SMALL CELL LUNG CANCER
     Dosage: 150 MG/DAILY
     Dates: start: 20090916
  3. MUCAINE [Concomitant]
  4. ULTRACET [Concomitant]
  5. BACITRACIN (+) NEOMYCIN SULFATE [Concomitant]
  6. CODEINE PHOSPHATE [Concomitant]
  7. ESTAZOLAM [Concomitant]
  8. MORPHINE [Concomitant]
  9. SENNOSIDES [Concomitant]

REACTIONS (10)
  - BACK PAIN [None]
  - BLOOD CULTURE POSITIVE [None]
  - DYSPNOEA [None]
  - GASTRIC ULCER [None]
  - GASTRITIS EROSIVE [None]
  - GASTROINTESTINAL HAEMORRHAGE [None]
  - HAEMOGLOBIN DECREASED [None]
  - OSTEOMYELITIS [None]
  - SEPSIS [None]
  - STAPHYLOCOCCAL INFECTION [None]
